FAERS Safety Report 22640252 (Version 1)
Quarter: 2023Q2

REPORT INFORMATION
  Report Type: Report from Study
  Country: US (occurrence: US)
  Receive Date: 20230626
  Receipt Date: 20230626
  Transmission Date: 20230722
  Serious: No
  Sender: FDA-Public Use
  Company Number: US-002147023-NVSC2023US143225

PATIENT
  Sex: Male

DRUGS (3)
  1. BETAMETHASONE [Suspect]
     Active Substance: BETAMETHASONE
     Indication: Psoriasis
     Dosage: UNK (AUGMENTED)
     Route: 065
  2. LISINOPRIL [Suspect]
     Active Substance: LISINOPRIL
     Indication: Psoriasis
     Dosage: UNK
     Route: 065
  3. COSENTYX [Suspect]
     Active Substance: SECUKINUMAB
     Indication: Psoriasis
     Dosage: UNK
     Route: 065

REACTIONS (6)
  - Psoriasis [Unknown]
  - Arthralgia [Unknown]
  - Pruritus [Unknown]
  - Dermatitis psoriasiform [Unknown]
  - Nail psoriasis [Unknown]
  - Therapeutic product effect incomplete [Unknown]
